FAERS Safety Report 18068904 (Version 5)
Quarter: 2020Q4

REPORT INFORMATION
  Report Type: Report from Study
  Country: US (occurrence: US)
  Receive Date: 20200724
  Receipt Date: 20201215
  Transmission Date: 20210113
  Serious: No
  Sender: FDA-Public Use
  Company Number: NVSC2020US208516

PATIENT
  Sex: Female

DRUGS (2)
  1. COSENTYX [Suspect]
     Active Substance: SECUKINUMAB
     Indication: PSORIASIS
     Dosage: 300 MG, (ONCE A WEEK FOR 5 WEEKS AND THEN Q4 WEEKS)
     Route: 058
     Dates: start: 20200718
  2. COSENTYX [Suspect]
     Active Substance: SECUKINUMAB
     Indication: PSORIASIS
     Dosage: 300 MG, UNKNOWN
     Route: 058

REACTIONS (8)
  - Hypersensitivity [Unknown]
  - Skin exfoliation [Recovering/Resolving]
  - Pain in extremity [Unknown]
  - Injection site bruising [Unknown]
  - Headache [Unknown]
  - Wrong technique in product usage process [Unknown]
  - Pruritus [Recovering/Resolving]
  - Photopsia [Unknown]
